FAERS Safety Report 4336206-X (Version None)
Quarter: 2004Q2

REPORT INFORMATION
  Report Type: 
  Country: None (occurrence: None)
  Receive Date: 20040406
  Receipt Date: 19960919
  Transmission Date: 20050107
  Serious: Yes (Death, Life-Threatening, Hospitalization)
  Sender: FDA-Public Use
  Company Number: WAES 96102426

PATIENT
  Age: 2 Day
  Sex: Male

DRUGS (5)
  1. INDOCIN I.V. [Suspect]
     Indication: PATENT DUCTUS ARTERIOSUS
     Dosage: IV    2 DOSE
     Route: 042
     Dates: start: 19960607, end: 19960608
  2. AMPICILLIN [Concomitant]
  3. CEFTIZOXIME [Concomitant]
  4. DOBUTAMINE [Concomitant]
  5. DOPAMINE HCI [Concomitant]

REACTIONS (7)
  - BLOOD UREA INCREASED [None]
  - GASTROINTESTINAL PERFORATION [None]
  - HEPATIC HAEMORRHAGE [None]
  - NECROTISING COLITIS [None]
  - OPERATIVE HAEMORRHAGE [None]
  - PERITONITIS [None]
  - SHOCK [None]
